FAERS Safety Report 9764689 (Version 1)
Quarter: 2013Q4

REPORT INFORMATION
  Report Type: Spontaneous
  Country: US (occurrence: None)
  Receive Date: 20131213
  Receipt Date: 20131213
  Transmission Date: 20140711
  Serious: Yes (Other)
  Sender: FDA-Public Use
  Company Number: 2013SA024597

PATIENT
  Age: 55 Year
  Sex: Female

DRUGS (1)
  1. CAPSAICIN [Suspect]
     Dosage: ; UNKNOWN ; TOPICAL
     Dates: start: 20081211

REACTIONS (8)
  - Thermal burn [None]
  - Erythema [None]
  - Inflammation [None]
  - Pain [None]
  - Blister [None]
  - Fear [None]
  - Anger [None]
  - Peripheral coldness [None]
